FAERS Safety Report 8399662-6 (Version None)
Quarter: 2012Q1

REPORT INFORMATION
  Report Type: 
  Country: None (occurrence: None)
  Receive Date: 20120323
  Receipt Date: 20111007
  Transmission Date: 20120608
  Serious: Yes (Other)
  Sender: FDA-Public Use
  Company Number: 163-21880-11072297

PATIENT
  Age: 65 Year
  Sex: Female

DRUGS (9)
  1. REVLIMID [Suspect]
     Indication: MULTIPLE MYELOMA
     Dosage: 10 MG, QOD, PO
     Route: 048
     Dates: start: 20100701, end: 20110816
  2. WARFARIN SODIUM [Concomitant]
  3. DEXAMETHASONE (DEXAMETHASONE)(UNKNOWN) ZYRTEC(CETIRIZINE HYDROCHLORIDE [Concomitant]
  4. OMEPRAZOLE [Concomitant]
  5. ZOMETA [Concomitant]
  6. CALCIUM + D (CALCIUM D3 ^STADA^)(UNKNOWN) [Concomitant]
  7. ZYRTEC [Concomitant]
  8. LEVOTHYROXINE SODIUM (LEVOTHYROXINE SODIUM)(UNKNOWN) [Concomitant]
  9. TYLENOL EXTRA STRENGTH(PARACETAMOL)(UNKNOWN) [Concomitant]

REACTIONS (5)
  - DRUG INEFFECTIVE [None]
  - NEUTROPHIL COUNT DECREASED [None]
  - PLATELET COUNT DECREASED [None]
  - HAEMOGLOBIN DECREASED [None]
  - BLOOD COUNT ABNORMAL [None]
